FAERS Safety Report 25483978 (Version 1)
Quarter: 2025Q2

REPORT INFORMATION
  Report Type: Spontaneous
  Country: US (occurrence: None)
  Receive Date: 20250626
  Receipt Date: 20250626
  Transmission Date: 20250716
  Serious: Yes (Disabling)
  Sender: FDA-CTU
  Company Number: None

PATIENT
  Age: 35 Year
  Sex: Female
  Weight: 58.5 kg

DRUGS (4)
  1. JEUVEAU [Suspect]
     Active Substance: PRABOTULINUMTOXINA-XVFS
     Indication: Skin wrinkling
     Dates: start: 20250306
  2. VITAMIN D [Concomitant]
     Active Substance: VITAMIN D NOS
  3. COPPER [Concomitant]
     Active Substance: COPPER
  4. CHOLINE [Concomitant]
     Active Substance: CHOLINE

REACTIONS (6)
  - Dysphagia [None]
  - Muscular weakness [None]
  - Muscle twitching [None]
  - Arthralgia [None]
  - Discomfort [None]
  - Ear, nose and throat disorder [None]

NARRATIVE: CASE EVENT DATE: 20250306
